FAERS Safety Report 18777742 (Version 1)
Quarter: 2021Q1

REPORT INFORMATION
  Report Type: Spontaneous
  Country: US (occurrence: US)
  Receive Date: 20210122
  Receipt Date: 20210122
  Transmission Date: 20210419
  Serious: No
  Sender: FDA-Public Use
  Company Number: US-PFIZER INC-2021035710

PATIENT
  Age: 35 Year
  Sex: Female

DRUGS (2)
  1. CYTOTEC [Suspect]
     Active Substance: MISOPROSTOL
     Dosage: 50 MG (STARTED WITH 50MG THEN WAITED 4 HOURS)
  2. CYTOTEC [Suspect]
     Active Substance: MISOPROSTOL
     Dosage: 100 MG (100MG EVERY 4 HOURS)

REACTIONS (6)
  - Uterine contractions abnormal [Unknown]
  - Maternal exposure during pregnancy [Unknown]
  - Nausea [Unknown]
  - Off label use [Unknown]
  - Product use in unapproved indication [Unknown]
  - Defaecation urgency [Unknown]
